FAERS Safety Report 6007081-2 (Version None)
Quarter: 2008Q4

REPORT INFORMATION
  Report Type: 
  Country: None (occurrence: None)
  Receive Date: 20081217
  Receipt Date: 20080108
  Transmission Date: 20090506
  Serious: No
  Sender: FDA-Public Use
  Company Number: US-ASTRAZENECA-2008UW00577

PATIENT
  Age: 42 Year
  Sex: Male

DRUGS (1)
  1. CRESTOR [Suspect]
     Dosage: TAKING CRESTOR AS PRESCRIBED SOME OF THE TIME
     Route: 048

REACTIONS (2)
  - BLOOD CHOLESTEROL INCREASED [None]
  - DRUG INEFFECTIVE [None]
